APPROVED DRUG PRODUCT: FOSRENOL
Active Ingredient: LANTHANUM CARBONATE
Strength: EQ 250MG BASE
Dosage Form/Route: TABLET, CHEWABLE;ORAL
Application: N021468 | Product #001
Applicant: TAKEDA PHARMACEUTICALS USA INC
Approved: Oct 26, 2004 | RLD: No | RS: No | Type: DISCN